FAERS Safety Report 14851886 (Version 2)
Quarter: 2019Q1

REPORT INFORMATION
  Report Type: Spontaneous
  Country: GB (occurrence: GB)
  Receive Date: 20180507
  Receipt Date: 20190206
  Transmission Date: 20190417
  Serious: Yes (Hospitalization, Other)
  Sender: FDA-Public Use
  Company Number: GB-ACCORD-066610

PATIENT
  Age: 62 Year
  Sex: Male

DRUGS (7)
  1. AMITRIPTYLINE [Concomitant]
     Active Substance: AMITRIPTYLINE
  2. GEMCITABINE/GEMCITABINE HYDROCHLORIDE [Suspect]
     Active Substance: GEMCITABINE\GEMCITABINE HYDROCHLORIDE
     Indication: PANCREATIC CARCINOMA
     Dosage: 1000 MG/M2 TO THE NEAREST 38 MG AS 2100 MG GIVEN ON DAY 1, 8, AND 15 ON A 28-DAY CYCLE FOR 6 CYCLES
     Route: 042
  3. ADCAL [Concomitant]
     Active Substance: CALCIUM CARBONATE
  4. BISOPROLOL [Concomitant]
     Active Substance: BISOPROLOL
  5. OMEPRAZOLE. [Concomitant]
     Active Substance: OMEPRAZOLE
  6. SIMVASTATIN. [Concomitant]
     Active Substance: SIMVASTATIN
  7. PIRITON [Concomitant]
     Active Substance: CHLORPHENIRAMINE MALEATE

REACTIONS (5)
  - Bone marrow failure [Unknown]
  - Pneumonitis [Recovering/Resolving]
  - Cardiac failure [Recovering/Resolving]
  - Acute kidney injury [Recovering/Resolving]
  - Cardiomyopathy [Recovering/Resolving]
